FAERS Safety Report 11892087 (Version 1)
Quarter: 2016Q1

REPORT INFORMATION
  Report Type: Spontaneous
  Country: US (occurrence: US)
  Receive Date: 20160106
  Receipt Date: 20160106
  Transmission Date: 20160526
  Serious: Yes (Hospitalization, Other)
  Sender: FDA-Public Use
  Company Number: US-ASTELLAS-2016US000336

PATIENT
  Sex: Male

DRUGS (1)
  1. XTANDI [Suspect]
     Active Substance: ENZALUTAMIDE
     Indication: PROSTATE CANCER
     Dosage: 160 MG (4 CAPSULES), ONCE DAILY
     Route: 048

REACTIONS (6)
  - Blood urine present [Unknown]
  - Cardiovascular insufficiency [Unknown]
  - Prostatomegaly [Unknown]
  - Urinary retention [Unknown]
  - Blister [Unknown]
  - Malignant neoplasm progression [Unknown]
